FAERS Safety Report 5063897-0 (Version None)
Quarter: 2006Q3

REPORT INFORMATION
  Report Type: 
  Country: None (occurrence: None)
  Receive Date: 20060703
  Receipt Date: 20060404
  Transmission Date: 20061208
  Serious: No
  Sender: FDA-Public Use
  Company Number: 2006S1002934

PATIENT
  Age: 29 Year
  Sex: Male

DRUGS (5)
  1. CLOZAPINE [Suspect]
     Indication: DRUG USE FOR UNKNOWN INDICATION
     Dosage: 100 MG ; BID ; ORAL
     Route: 048
     Dates: start: 20050601
  2. BENZTROPINE MESYLATE [Concomitant]
  3. QUETIAPINE FUMARATE [Concomitant]
  4. THIORIDAZINE HCL [Concomitant]
  5. VALPROATE SODIUM [Concomitant]

REACTIONS (1)
  - GRANULOCYTOPENIA [None]
